FAERS Safety Report 20112642 (Version 1)
Quarter: 2021Q4

REPORT INFORMATION
  Report Type: Spontaneous
  Country: BN (occurrence: None)
  Receive Date: 20211125
  Receipt Date: 20211125
  Transmission Date: 20220303
  Serious: Yes (Other)
  Sender: FDA-Public Use
  Company Number: BN-ROCHE-2964363

PATIENT
  Age: 60 Year
  Sex: Female

DRUGS (1)
  1. RITUXIMAB [Suspect]
     Active Substance: RITUXIMAB
     Indication: Neuromyelitis optica spectrum disorder
     Route: 065

REACTIONS (5)
  - Neutropenia [Recovered/Resolved]
  - Paralysis [Unknown]
  - Lymphopenia [Recovered/Resolved]
  - Systemic lupus erythematosus [Unknown]
  - Off label use [Unknown]
